FAERS Safety Report 14774334 (Version 4)
Quarter: 2018Q2

REPORT INFORMATION
  Report Type: Spontaneous
  Country: GB (occurrence: GB)
  Receive Date: 20180418
  Receipt Date: 20180514
  Transmission Date: 20180711
  Serious: Yes (Other)
  Sender: FDA-Public Use
  Company Number: GB-JNJFOC-20180410705

PATIENT
  Sex: Female

DRUGS (2)
  1. ZIRTEK [Suspect]
     Active Substance: CETIRIZINE HYDROCHLORIDE
     Indication: URTICARIA
     Dosage: 0.5 DF (DOSAGE FORM) DAILY
     Route: 065
  2. ZIRTEK [Suspect]
     Active Substance: CETIRIZINE HYDROCHLORIDE
     Indication: URTICARIA
     Dosage: 1.0 DF (DOSAGE FORM) DAILY
     Route: 065
     Dates: start: 2003

REACTIONS (2)
  - Withdrawal syndrome [Unknown]
  - Pruritus [Unknown]
